FAERS Safety Report 5048348-4 (Version None)
Quarter: 2006Q3

REPORT INFORMATION
  Report Type: 
  Country: None (occurrence: None)
  Receive Date: 20060711
  Receipt Date: 20050729
  Transmission Date: 20061208
  Serious: Yes (Death, Hospitalization)
  Sender: FDA-Public Use
  Company Number: JP-BOEHRINGER INGELHEIM PHARMACEUTICALS, INC.-2005-BP-13678NB

PATIENT
  Sex: Male
  Weight: 61.5 kg

DRUGS (17)
  1. BI-SIFROL TABLETS [Suspect]
     Indication: PARKINSON'S DISEASE
     Route: 048
     Dates: start: 20050216, end: 20051119
  2. NEODOPASTON [Concomitant]
     Indication: PARKINSON'S DISEASE
     Route: 048
     Dates: start: 20041125, end: 20051119
  3. SYMMETREL [Concomitant]
     Indication: PARKINSON'S DISEASE
     Route: 048
     Dates: start: 20021106, end: 20051119
  4. ROCORNAL [Concomitant]
     Indication: ANGINA PECTORIS
     Route: 048
     Dates: start: 20040922, end: 20051119
  5. SIGMART [Concomitant]
     Indication: ANGINA PECTORIS
     Route: 048
     Dates: start: 20040922, end: 20051119
  6. MAGLAX [Concomitant]
     Indication: DYSPEPSIA
     Route: 048
     Dates: start: 20030205, end: 20051119
  7. GASMOTIN [Concomitant]
     Indication: DYSPEPSIA
     Route: 048
     Dates: start: 20030205, end: 20051119
  8. SELBEX [Concomitant]
     Indication: DYSPEPSIA
     Route: 048
     Dates: start: 20030205, end: 20051119
  9. SEROQUEL [Concomitant]
     Indication: PSYCHIATRIC SYMPTOM
     Route: 048
     Dates: start: 20021213, end: 20050323
  10. BUFFERIN [Concomitant]
     Indication: MYOCARDIAL INFARCTION
     Route: 048
     Dates: start: 20021213, end: 20051119
  11. NORVASC [Concomitant]
     Indication: HYPERTENSION
     Route: 048
     Dates: start: 20021213, end: 20051119
  12. RYTHMODAN R (DISOPYRAMIDE PHOSPHATE) [Concomitant]
     Indication: ANGINA PECTORIS
     Route: 048
     Dates: start: 20021213, end: 20051119
  13. PURSENNID (SENNOSIDE) [Concomitant]
     Indication: DYSPEPSIA
     Route: 048
     Dates: start: 20021213, end: 20051119
  14. DEPAS [Concomitant]
     Indication: INSOMNIA
     Route: 048
     Dates: start: 20021213, end: 20051119
  15. BENZALIN [Concomitant]
     Indication: INSOMNIA
     Route: 048
     Dates: start: 20021213, end: 20050720
  16. ADOFEED [Concomitant]
     Indication: PERIARTHRITIS
     Route: 062
     Dates: start: 20030818, end: 20051119
  17. EURODIN [Concomitant]
     Indication: INSOMNIA
     Route: 048
     Dates: start: 20050721, end: 20051119

REACTIONS (5)
  - CARDIAC FAILURE ACUTE [None]
  - FALL [None]
  - OEDEMA PERIPHERAL [None]
  - RESPIRATORY ARREST [None]
  - TENDON RUPTURE [None]
